FAERS Safety Report 14381742 (Version 1)
Quarter: 2018Q1

REPORT INFORMATION
  Report Type: Spontaneous
  Country: US (occurrence: US)
  Receive Date: 20180112
  Receipt Date: 20180112
  Transmission Date: 20180509
  Serious: No
  Sender: FDA-Public Use
  Company Number: US-PFIZER INC-2018013503

PATIENT
  Sex: Male

DRUGS (1)
  1. ADVIL LIQUI-GELS [Suspect]
     Active Substance: IBUPROFEN
     Indication: POLYMYALGIA RHEUMATICA
     Dosage: 4 DF, DAILY

REACTIONS (2)
  - Blood potassium increased [Unknown]
  - Intentional product misuse [Unknown]
